FAERS Safety Report 7713606-9 (Version None)
Quarter: 2011Q3

REPORT INFORMATION
  Report Type: 
  Country: None (occurrence: None)
  Receive Date: 20110826
  Receipt Date: 20110818
  Transmission Date: 20111222
  Serious: Yes (Other)
  Sender: FDA-Public Use
  Company Number: DE-ELI_LILLY_AND_COMPANY-DE201107000129

PATIENT
  Sex: Female

DRUGS (8)
  1. SYMBICORT [Concomitant]
  2. METOPROLOL [Concomitant]
  3. EFFIENT [Suspect]
     Indication: STENT PLACEMENT
     Dosage: 5 MG, UNKNOWN
     Route: 048
     Dates: start: 20110525
  4. CALCIUM 500+D3 [Concomitant]
     Dosage: 8 MG, UNK
  5. ASPIRIN [Concomitant]
     Dosage: 100 DF, UNK
  6. SPIRIVA [Concomitant]
  7. PLAVIX [Concomitant]
     Dosage: UNK
     Dates: start: 20010513, end: 20110525
  8. ATACAND [Concomitant]
     Dosage: 8 MG, UNK

REACTIONS (2)
  - CHRONIC OBSTRUCTIVE PULMONARY DISEASE [None]
  - BRONCHIAL HYPERREACTIVITY [None]
